FAERS Safety Report 4691843-8 (Version None)
Quarter: 2005Q2

REPORT INFORMATION
  Report Type: 
  Country: None (occurrence: None)
  Receive Date: 20050615
  Receipt Date: 20050615
  Transmission Date: 20051028
  Serious: Yes (Hospitalization)
  Sender: FDA-Public Use
  Company Number: None

PATIENT
  Age: 82 Year
  Sex: Male
  Weight: 96 kg

DRUGS (2)
  1. MELOXICAM  7.5MG [Suspect]
     Indication: OSTEOARTHRITIS
     Dosage: 7.5 MG DAILY  ORAL
     Route: 048
  2. PREDNISONE 50MG TAB [Suspect]
     Indication: URTICARIA
     Dosage: 50 MG DAILY ORAL
     Route: 048
     Dates: start: 20050418, end: 20050420

REACTIONS (5)
  - DRUG DOSE OMISSION [None]
  - DYSPNOEA [None]
  - GASTROINTESTINAL HAEMORRHAGE [None]
  - TREATMENT NONCOMPLIANCE [None]
  - URTICARIA [None]
